FAERS Safety Report 24387774 (Version 1)
Quarter: 2024Q4

REPORT INFORMATION
  Report Type: Spontaneous
  Country: US (occurrence: None)
  Receive Date: 20241001
  Receipt Date: 20241001
  Transmission Date: 20250115
  Serious: Yes (Other)
  Sender: Public
  Company Number: None

PATIENT
  Age: 66 Year
  Sex: Female
  Weight: 71.1 kg

DRUGS (10)
  1. REPATHA [Suspect]
     Active Substance: EVOLOCUMAB
     Indication: Hyperlipidaemia
     Dosage: OTHER QUANTITY : 1 INJECTION(S);?OTHER FREQUENCY : EVERY 2 WEEKS;?
     Route: 058
     Dates: start: 20221116, end: 20230414
  2. GEMTESA [Concomitant]
     Active Substance: VIBEGRON
  3. LEVOTHYROXINE [Concomitant]
     Active Substance: LEVOTHYROXINE
  4. ESTRADIOL [Concomitant]
     Active Substance: ESTRADIOL
  5. PYRIDIUM [Concomitant]
     Active Substance: PHENAZOPYRIDINE
  6. TELMISARTAN [Concomitant]
     Active Substance: TELMISARTAN
  7. HYDROXYZINE [Concomitant]
     Active Substance: HYDROXYZINE HYDROCHLORIDE
  8. Vaginal suppository that includes Diazepam [Concomitant]
  9. LIDOCAINE [Concomitant]
     Active Substance: LIDOCAINE
  10. Baclafen [Concomitant]

REACTIONS (3)
  - Burning sensation [None]
  - Bladder spasm [None]
  - Cystitis ulcerative [None]

NARRATIVE: CASE EVENT DATE: 20221130
